FAERS Safety Report 7431777-9 (Version None)
Quarter: 2011Q1

REPORT INFORMATION
  Report Type: 
  Country: None (occurrence: None)
  Receive Date: 20110302
  Receipt Date: 20101026
  Transmission Date: 20110831
  Serious: No
  Sender: FDA-Public Use
  Company Number: 021260

PATIENT
  Sex: Female
  Weight: 72 kg

DRUGS (12)
  1. BACLOFEN [Concomitant]
  2. KETOPROFEN [Concomitant]
  3. ACIPHEX [Concomitant]
  4. AMLODIPINE BESYLATE [Concomitant]
  5. FEXOFENADINE [Concomitant]
  6. NASONEX [Concomitant]
  7. FOLIC ACID [Concomitant]
  8. TRAZODONE HCL [Concomitant]
  9. ASPIRIN [Concomitant]
  10. METHYLPREDNISOLONE [Concomitant]
  11. CIMZIA [Suspect]
     Indication: RHEUMATOID ARTHRITIS
     Dosage: 400 MG 1X/28 DAYS SUBCUTANEOUS
     Route: 058
     Dates: start: 20100101, end: 20110207
  12. HYDROCODONE BITARTRATE [Concomitant]

REACTIONS (5)
  - CONSTIPATION [None]
  - ABDOMINAL PAIN UPPER [None]
  - WEIGHT INCREASED [None]
  - BOWEL MOVEMENT IRREGULARITY [None]
  - OBSTRUCTION [None]
